FAERS Safety Report 6274550-X (Version None)
Quarter: 2009Q3

REPORT INFORMATION
  Report Type: 
  Country: None (occurrence: None)
  Receive Date: 20090716
  Receipt Date: 20090706
  Transmission Date: 20100115
  Serious: Yes (Hospitalization)
  Sender: FDA-Public Use
  Company Number: 100006553

PATIENT
  Age: 54 Year
  Sex: Female
  Weight: 73.7095 kg

DRUGS (16)
  1. MINACIPRAN (OPEN-LABEL) (MILNACIPRAN HYDROCHLORIDE) [Suspect]
     Indication: FIBROMYALGIA
     Dosage: 100 MG (50 MG, 2 IN 1 D) ORAL; 50 MG (50 MG, AM) ORAL; 75 MG (75 MG, PM) ORAL; 100 MG (50 MG, 2 IN 1
     Route: 048
     Dates: start: 20070626, end: 20070709
  2. MINACIPRAN (OPEN-LABEL) (MILNACIPRAN HYDROCHLORIDE) [Suspect]
     Indication: FIBROMYALGIA
     Dosage: 100 MG (50 MG, 2 IN 1 D) ORAL; 50 MG (50 MG, AM) ORAL; 75 MG (75 MG, PM) ORAL; 100 MG (50 MG, 2 IN 1
     Route: 048
     Dates: start: 20070710, end: 20080325
  3. MINACIPRAN (OPEN-LABEL) (MILNACIPRAN HYDROCHLORIDE) [Suspect]
     Indication: FIBROMYALGIA
     Dosage: 100 MG (50 MG, 2 IN 1 D) ORAL; 50 MG (50 MG, AM) ORAL; 75 MG (75 MG, PM) ORAL; 100 MG (50 MG, 2 IN 1
     Route: 048
     Dates: start: 20080326, end: 20080630
  4. MINACIPRAN (OPEN-LABEL) (MILNACIPRAN HYDROCHLORIDE) [Suspect]
     Indication: FIBROMYALGIA
     Dosage: 100 MG (50 MG, 2 IN 1 D) ORAL; 50 MG (50 MG, AM) ORAL; 75 MG (75 MG, PM) ORAL; 100 MG (50 MG, 2 IN 1
     Route: 048
     Dates: start: 20080326, end: 20080630
  5. MINACIPRAN (OPEN-LABEL) (MILNACIPRAN HYDROCHLORIDE) [Suspect]
     Indication: FIBROMYALGIA
     Dosage: 100 MG (50 MG, 2 IN 1 D) ORAL; 50 MG (50 MG, AM) ORAL; 75 MG (75 MG, PM) ORAL; 100 MG (50 MG, 2 IN 1
     Route: 048
     Dates: start: 20080701
  6. MOBIC [Concomitant]
  7. FINACEA (TABLETS) [Concomitant]
  8. CALCIUM [Concomitant]
  9. NICOMIDE (TABLETS) [Concomitant]
  10. ADVAIR (INHALANT) [Concomitant]
  11. XOPENEX (INHALANT) [Concomitant]
  12. EXTRA STRENGTH TYLENOL [Concomitant]
  13. CLONIDINE [Concomitant]
  14. VAGIFEM [Concomitant]
  15. QUININE OTC (TABLETS) [Concomitant]
  16. AMBIEN CR (TABLETS) [Concomitant]

REACTIONS (6)
  - BLOOD PRESSURE INCREASED [None]
  - BODY TEMPERATURE DECREASED [None]
  - COMMUNICATION DISORDER [None]
  - CONFUSIONAL STATE [None]
  - CONVULSION [None]
  - HEADACHE [None]
